FAERS Safety Report 6389273-6 (Version None)
Quarter: 2009Q4

REPORT INFORMATION
  Report Type: 
  Country: None (occurrence: None)
  Receive Date: 20091006
  Receipt Date: 20070522
  Transmission Date: 20100525
  Serious: Yes (Hospitalization, Other)
  Sender: FDA-Public Use
  Company Number: US-ASTRAZENECA-2006UW21911

PATIENT
  Age: 41 Year
  Sex: Female
  Weight: 95.3 kg

DRUGS (10)
  1. SEROQUEL [Suspect]
     Indication: SCHIZOPHRENIA
     Dosage: 100  MG, 300 MG
     Route: 048
     Dates: start: 19980101
  2. SEROQUEL [Suspect]
     Dosage: 100 - 600 MG
     Route: 048
     Dates: start: 20020927
  3. CLOZAPINE [Concomitant]
  4. RISPERDAL [Concomitant]
     Dosage: 03 - 4 MG
     Dates: start: 20001026
  5. ZYPREXA [Concomitant]
     Dates: start: 20020101, end: 20050101
  6. WELLBUTRIN [Concomitant]
     Dates: start: 19950205
  7. SYNTHROID [Concomitant]
     Dosage: 0.25 - 0.125 MG
     Dates: start: 19950205
  8. NORVASC [Concomitant]
     Dates: start: 19950205
  9. NEXIUM [Concomitant]
     Dates: start: 20011201
  10. CELEXA [Concomitant]
     Dosage: 10 - 40 MG
     Dates: start: 20001026

REACTIONS (5)
  - DIABETIC COMA [None]
  - DIABETIC NEUROPATHY [None]
  - HYPOGLYCAEMIC ENCEPHALOPATHY [None]
  - OVERDOSE [None]
  - TYPE 2 DIABETES MELLITUS [None]
